FAERS Safety Report 23021215 (Version 1)
Quarter: 2023Q4

REPORT INFORMATION
  Report Type: Spontaneous
  Country: US (occurrence: US)
  Receive Date: 20231003
  Receipt Date: 20231003
  Transmission Date: 20240110
  Serious: No
  Sender: FDA-Public Use
  Company Number: US-REVANCE THERAPEUTICS INC.-US-REV-2023-000344

PATIENT

DRUGS (1)
  1. DAXIBOTULINUMTOXIN A-LANM [Suspect]
     Active Substance: DAXIBOTULINUMTOXIN A-LANM
     Indication: Product used for unknown indication
     Dosage: 52 U (GLABELLA 20, FRONTALIS 11, CROWS FEET 24, ORBICULARIS ORIS 8)
     Route: 065
     Dates: start: 20230712

REACTIONS (7)
  - Dyspnoea [Recovered/Resolved]
  - Oropharyngeal pain [Unknown]
  - Back pain [Unknown]
  - Mastication disorder [Unknown]
  - Migraine [Unknown]
  - Nausea [Unknown]
  - Off label use [Unknown]

NARRATIVE: CASE EVENT DATE: 20230712
